FAERS Safety Report 15990619 (Version 2)
Quarter: 2019Q1

REPORT INFORMATION
  Report Type: Spontaneous
  Country: CA (occurrence: CA)
  Receive Date: 20190221
  Receipt Date: 20190312
  Transmission Date: 20190418
  Serious: Yes (Hospitalization, Other)
  Sender: FDA-Public Use
  Company Number: CA-ALLERGAN-1907239US

PATIENT
  Sex: Female

DRUGS (2)
  1. CORTICOSTEROID NOS [Suspect]
     Active Substance: CORTICOSTEROID NOS
     Indication: COLITIS ULCERATIVE
     Dosage: UNK
     Route: 042
     Dates: start: 20190122
  2. SALOFALK [Suspect]
     Active Substance: MESALAMINE
     Indication: COLITIS ULCERATIVE
     Dosage: 1 G IN AM AND 4 G IN PM
     Route: 054
     Dates: start: 20190105

REACTIONS (5)
  - Drug ineffective [Unknown]
  - Colitis [Unknown]
  - Haematochezia [Unknown]
  - Drug resistance [Unknown]
  - Colitis ulcerative [Unknown]
